FAERS Safety Report 12906869 (Version 3)
Quarter: 2017Q1

REPORT INFORMATION
  Report Type: Spontaneous
  Country: US (occurrence: US)
  Receive Date: 20161103
  Receipt Date: 20170203
  Transmission Date: 20170428
  Serious: Yes (Death, Hospitalization, Other)
  Sender: FDA-Public Use
  Company Number: US-PFIZER INC-2016503796

PATIENT
  Age: 85 Year
  Sex: Male

DRUGS (2)
  1. SUTENT [Suspect]
     Active Substance: SUNITINIB MALATE
     Dosage: 50 MG, DAILY (FOR 14 DAYS)
     Route: 048
     Dates: start: 20160914, end: 20160928
  2. SUTENT [Suspect]
     Active Substance: SUNITINIB MALATE
     Indication: RENAL CANCER
     Dosage: 50 MG, CYCLIC (ONE CAPSULE DAILY FOR 2 WEEKS ON, 1 WEEK OFF)
     Dates: start: 20160913

REACTIONS (15)
  - Urinary tract infection [Not Recovered/Not Resolved]
  - Pyrexia [Not Recovered/Not Resolved]
  - Malaise [Unknown]
  - Sepsis [Fatal]
  - Gait disturbance [Unknown]
  - Renal failure [Fatal]
  - Rash [Unknown]
  - Abdominal pain upper [Unknown]
  - Myalgia [Unknown]
  - Headache [Unknown]
  - Skin lesion [Unknown]
  - Asthenia [Not Recovered/Not Resolved]
  - Pain [Not Recovered/Not Resolved]
  - Tongue discomfort [Unknown]
  - Oral discomfort [Unknown]

NARRATIVE: CASE EVENT DATE: 20161001
